FAERS Safety Report 10229685 (Version 1)
Quarter: 2014Q2

REPORT INFORMATION
  Report Type: Report from Study
  Country: BR (occurrence: BR)
  Receive Date: 20140611
  Receipt Date: 20140611
  Transmission Date: 20141212
  Serious: Yes (Hospitalization, Other)
  Sender: FDA-Public Use
  Company Number: PHHY2014BR068485

PATIENT
  Age: 47 Year
  Sex: Female

DRUGS (15)
  1. BASILIXIMAB [Suspect]
     Indication: IMMUNOSUPPRESSION
     Dosage: 20 MG,
  2. BASILIXIMAB [Suspect]
     Dosage: 20 MG,
  3. MYCOPHENOLIC ACID [Suspect]
     Indication: RENAL TRANSPLANT
     Dosage: 720 MG, 12/12 H
  4. MYCOPHENOLIC ACID [Suspect]
     Indication: IMMUNOSUPPRESSION
     Dosage: 1440 MG, ONE MONTH
  5. MYCOPHENOLIC ACID [Suspect]
     Dosage: 720 MG /DAY (HALVED 360MG FOR 12/12 HOURS)
  6. MYCOPHENOLIC ACID [Suspect]
     Dosage: 1440 MG PER DAY
  7. TACROLIMUS [Suspect]
     Indication: IMMUNOSUPPRESSION
     Dosage: 9 MG, UNK
  8. TACROLIMUS [Suspect]
     Dosage: 9 MG/DAY ON 1 MONTH
  9. TACROLIMUS [Suspect]
     Dosage: 5 MG/DAY ON 6MONTH
  10. TACROLIMUS [Suspect]
     Dosage: 4 MG/DAY ON 28 MONTH
  11. PREDNISONE [Suspect]
     Indication: IMMUNOSUPPRESSION
     Dosage: 60 MG,
  12. PREDNISONE [Suspect]
     Dosage: 20 MG/DY ONE MONTH
  13. PREDNISONE [Suspect]
     Dosage: 5 MG/DAY ON 6 MONTH
  14. PREDNISONE [Suspect]
     Dosage: 40 MG PER DAY, 28 MONTH
  15. CHLOROQUINE [Suspect]
     Dosage: UNK UKN, UNK

REACTIONS (3)
  - Cytomegalovirus infection [Unknown]
  - Retinal vasculitis [Unknown]
  - Visual acuity reduced [Unknown]
